FAERS Safety Report 6556647-X (Version None)
Quarter: 2010Q1

REPORT INFORMATION
  Report Type: 
  Country: None (occurrence: None)
  Receive Date: 20100125
  Receipt Date: 20100114
  Transmission Date: 20100710
  Serious: Yes (Death, Life-Threatening)
  Sender: FDA-Public Use
  Company Number: 2010SP003651

PATIENT
  Age: 67 Year
  Sex: Male

DRUGS (2)
  1. INTEGRILIN [Suspect]
     Indication: ANTICOAGULANT THERAPY
     Dates: start: 20100109, end: 20100109
  2. HEPARIN [Suspect]
     Indication: ANTICOAGULANT THERAPY
     Dates: start: 20100109, end: 20100109

REACTIONS (2)
  - CARDIOGENIC SHOCK [None]
  - CORONARY ARTERY OCCLUSION [None]
